FAERS Safety Report 22926288 (Version 4)
Quarter: 2024Q1

REPORT INFORMATION
  Report Type: Spontaneous
  Country: US (occurrence: US)
  Receive Date: 20230909
  Receipt Date: 20240120
  Transmission Date: 20240410
  Serious: Yes (Hospitalization, Other)
  Sender: FDA-Public Use
  Company Number: US-MLMSERVICE-20230808-4472890-1

PATIENT
  Age: 53 Year
  Sex: Female
  Weight: 52.3 kg

DRUGS (2)
  1. SULFAMETHOXAZOLE\TRIMETHOPRIM [Suspect]
     Active Substance: SULFAMETHOXAZOLE\TRIMETHOPRIM
     Indication: Urinary tract infection
     Dosage: UNK
     Route: 065
  2. LANSOPRAZOLE [Concomitant]
     Active Substance: LANSOPRAZOLE
     Indication: Product used for unknown indication
     Dosage: 30 MILLIGRAM, ONCE A DAY
     Route: 065

REACTIONS (10)
  - Erythema multiforme [Recovered/Resolved]
  - Dermatitis [Recovered/Resolved]
  - Noninfective conjunctivitis [Recovered/Resolved]
  - Face oedema [Recovered/Resolved]
  - Alanine aminotransferase increased [Recovered/Resolved]
  - Haemodynamic instability [Recovered/Resolved]
  - Oral pain [Recovered/Resolved]
  - Lymphopenia [Recovered/Resolved]
  - Weight decreased [Recovered/Resolved]
  - Type IV hypersensitivity reaction [Recovered/Resolved]
